FAERS Safety Report 7106094-7 (Version None)
Quarter: 2010Q4

REPORT INFORMATION
  Report Type: 
  Country: None (occurrence: None)
  Receive Date: 20101116
  Receipt Date: 20101109
  Transmission Date: 20110411
  Serious: Yes (Hospitalization, Disabling)
  Sender: FDA-Public Use
  Company Number: ES-MERCK-1011ESP00005

PATIENT
  Age: 64 Year
  Sex: Female

DRUGS (4)
  1. VYTORIN [Suspect]
     Indication: DYSLIPIDAEMIA
     Route: 048
     Dates: start: 20100928, end: 20101024
  2. METFORMIN HYDROCHLORIDE AND VILDAGLIPTIN [Concomitant]
     Indication: DIABETES MELLITUS
     Route: 065
  3. INFLUENZA VIRUS VACCINE (UNSPECIFIED) [Suspect]
     Indication: ANTIVIRAL PROPHYLAXIS
     Route: 065
     Dates: start: 20101014, end: 20101014
  4. ATORVASTATIN CALCIUM [Concomitant]
     Indication: DYSLIPIDAEMIA
     Route: 048
     Dates: end: 20100928

REACTIONS (5)
  - ABASIA [None]
  - HYPERPARATHYROIDISM PRIMARY [None]
  - PARATHYROID TUMOUR BENIGN [None]
  - RENAL IMPAIRMENT [None]
  - RHABDOMYOLYSIS [None]
